FAERS Safety Report 5772026-7 (Version None)
Quarter: 2008Q2

REPORT INFORMATION
  Report Type: 
  Country: None (occurrence: None)
  Receive Date: 20080613
  Receipt Date: 20080604
  Transmission Date: 20081010
  Serious: Yes (Other)
  Sender: FDA-Public Use
  Company Number: US-AVENTIS-200813517US

PATIENT
  Age: 51 Year
  Sex: Female

DRUGS (4)
  1. LEFLUNOMIDE [Suspect]
     Dosage: DOSE: UNK
  2. TACROLIMUS [Suspect]
     Dosage: DOSE: UNK
  3. THYMOGLOBULIN [Concomitant]
     Dosage: DOSE: UNK
  4. MYCOPHENOLATE MOFETIL [Concomitant]
     Dosage: DOSE: UNK

REACTIONS (6)
  - BLOOD CREATININE INCREASED [None]
  - BLOOD LACTATE DEHYDROGENASE INCREASED [None]
  - ECCHYMOSIS [None]
  - OFF LABEL USE [None]
  - THROMBOCYTOPENIA [None]
  - THROMBOTIC MICROANGIOPATHY [None]
